FAERS Safety Report 8258437-9 (Version None)
Quarter: 2012Q1

REPORT INFORMATION
  Report Type: 
  Country: None (occurrence: None)
  Receive Date: 20120322
  Receipt Date: 20111228
  Transmission Date: 20120608
  Serious: Yes (Hospitalization)
  Sender: FDA-Public Use
  Company Number: UTC-014003

PATIENT
  Age: 86 Year
  Sex: Female
  Weight: 48.6 kg

DRUGS (6)
  1. TYVASO [Suspect]
     Indication: PULMONARY ARTERIAL HYPERTENSION
     Dosage: 216 MCG (54 MCG,4 IN 1 D),INHALATION
     Route: 055
     Dates: start: 20101103
  2. REVATIO [Concomitant]
  3. TIKOSYN [Concomitant]
  4. OXYGEN (OXYGEN) [Concomitant]
  5. STALEVO (STALEVO) [Concomitant]
  6. COUMADIN [Concomitant]

REACTIONS (2)
  - FALL [None]
  - HIP FRACTURE [None]
